FAERS Safety Report 5447770-1 (Version None)
Quarter: 2007Q3

REPORT INFORMATION
  Report Type: 
  Country: None (occurrence: None)
  Receive Date: 20070910
  Receipt Date: 20070828
  Transmission Date: 20080115
  Serious: Yes (Hospitalization)
  Sender: FDA-Public Use
  Company Number: JP-ASTRAZENECA-2007AP04429

PATIENT
  Age: 24956 Day
  Sex: Male
  Weight: 71 kg

DRUGS (8)
  1. CRESTOR [Suspect]
     Indication: HYPERCHOLESTEROLAEMIA
     Route: 048
     Dates: start: 20070303, end: 20070616
  2. KETOPROFEN [Concomitant]
     Dates: start: 20010612
  3. PLETAL [Concomitant]
     Indication: ANGINA PECTORIS
     Route: 048
     Dates: start: 20040127
  4. ADALAT [Concomitant]
     Indication: HYPERTENSION
     Route: 048
     Dates: start: 20070405
  5. LANSOPRAZOLE [Concomitant]
     Indication: REFLUX OESOPHAGITIS
     Route: 048
     Dates: start: 20050203
  6. NITRODERM [Concomitant]
     Indication: ANGINA PECTORIS
     Dates: start: 20050215, end: 20070616
  7. ITOROL [Concomitant]
     Indication: ANGINA PECTORIS
     Route: 048
     Dates: start: 20050215, end: 20070616
  8. PLAVIX [Concomitant]
     Indication: ANGINA PECTORIS
     Route: 048
     Dates: start: 20070601

REACTIONS (1)
  - TOXIC SKIN ERUPTION [None]
